FAERS Safety Report 9212871 (Version 3)
Quarter: 2013Q3

REPORT INFORMATION
  Report Type: Spontaneous
  Country: US (occurrence: US)
  Receive Date: 20130405
  Receipt Date: 20130702
  Transmission Date: 20140515
  Serious: Yes (Life-Threatening)
  Sender: FDA-Public Use
  Company Number: US-009507513-1304USA000636

PATIENT
  Age: 13 Year
  Sex: Male
  Weight: 62.13 kg

DRUGS (1)
  1. SINGULAIR [Suspect]
     Dosage: UNK
     Route: 048
     Dates: end: 2013

REACTIONS (4)
  - Self injurious behaviour [Recovered/Resolved]
  - Fear [Recovered/Resolved]
  - Psychotic disorder [Unknown]
  - Pain [Unknown]
